FAERS Safety Report 10542031 (Version 1)
Quarter: 2014Q4

REPORT INFORMATION
  Report Type: Spontaneous
  Country: US (occurrence: US)
  Receive Date: 20141024
  Receipt Date: 20141024
  Transmission Date: 20150529
  Serious: Yes (Hospitalization)
  Sender: FDA-Public Use
  Company Number: US-MYLANLABS-2014SP001544

PATIENT
  Age: 48 Year
  Sex: Female
  Weight: 53.16 kg

DRUGS (9)
  1. DEXAMETHASONE. [Suspect]
     Active Substance: DEXAMETHASONE
     Indication: HEADACHE
     Route: 048
     Dates: start: 201311, end: 201403
  2. OXYCODONE [Concomitant]
     Active Substance: OXYCODONE
     Indication: PAIN
  3. ALBUTEROL                          /00139502/ [Concomitant]
     Active Substance: ALBUTEROL
     Indication: WHEEZING
  4. PEMETREXED [Concomitant]
     Active Substance: PEMETREXED
     Indication: NON-SMALL CELL LUNG CANCER
     Dates: start: 20140305
  5. ZOFRAN                             /00955301/ [Concomitant]
     Active Substance: ONDANSETRON HYDROCHLORIDE
     Indication: NAUSEA
     Dates: start: 201303
  6. CRIZOTINIB [Suspect]
     Active Substance: CRIZOTINIB
     Indication: NON-SMALL CELL LUNG CANCER
     Route: 048
     Dates: start: 20121018, end: 20140211
  7. CARBOPLATIN. [Concomitant]
     Active Substance: CARBOPLATIN
     Indication: NON-SMALL CELL LUNG CANCER
     Dates: start: 20140305
  8. VAGIFEM [Concomitant]
     Active Substance: ESTRADIOL
  9. LOVENOX [Concomitant]
     Active Substance: ENOXAPARIN SODIUM
     Indication: PULMONARY EMBOLISM
     Dates: start: 20140206

REACTIONS (2)
  - Abdominal pain upper [Recovering/Resolving]
  - Oesophageal candidiasis [Recovering/Resolving]

NARRATIVE: CASE EVENT DATE: 20140306
